FAERS Safety Report 5623111-1 (Version None)
Quarter: 2008Q1

REPORT INFORMATION
  Report Type: 
  Country: None (occurrence: None)
  Receive Date: 20080212
  Receipt Date: 20080206
  Transmission Date: 20080703
  Serious: Yes (Other)
  Sender: FDA-Public Use
  Company Number: A0702198A

PATIENT
  Age: 60 Year
  Sex: Female

DRUGS (7)
  1. LAMICTAL [Suspect]
     Indication: BIPOLAR DISORDER
     Dosage: 200MG IN THE MORNING
     Route: 048
     Dates: start: 20071002, end: 20080107
  2. NORVASC [Concomitant]
     Indication: HYPERTENSION
     Dates: start: 20050101
  3. METOPROLOL TARTRATE [Concomitant]
     Indication: HYPERTENSION
     Dates: start: 20050101
  4. LISINOPRIL [Concomitant]
     Indication: HYPERTENSION
     Dates: start: 20050101
  5. FUROSEMIDE [Concomitant]
     Indication: HYPERTENSION
     Dates: start: 20050101
  6. PROZAC [Concomitant]
     Indication: DEPRESSION
     Route: 048
     Dates: start: 20010101
  7. XANAX [Concomitant]
     Indication: DEPRESSION
     Dosage: .25MG AS REQUIRED
     Route: 048
     Dates: start: 20010101

REACTIONS (1)
  - CANDIDIASIS [None]
